FAERS Safety Report 16198289 (Version 1)
Quarter: 2019Q2

REPORT INFORMATION
  Report Type: Report from Study
  Country: CN (occurrence: CN)
  Receive Date: 20190415
  Receipt Date: 20190415
  Transmission Date: 20190711
  Serious: Yes (Death)
  Sender: FDA-Public Use
  Company Number: CN-ASTRAZENECA-2019SE55913

PATIENT
  Sex: Male

DRUGS (1)
  1. SYMBICORT [Suspect]
     Active Substance: BUDESONIDE\FORMOTEROL FUMARATE DIHYDRATE
     Indication: CHRONIC OBSTRUCTIVE PULMONARY DISEASE
     Dosage: 160 UG, INHALATION, UNKNOWN FREQUENCY UNKNOWN
     Route: 055

REACTIONS (1)
  - Death [Fatal]
